FAERS Safety Report 8691302 (Version 3)
Quarter: 2013Q1

REPORT INFORMATION
  Report Type: Spontaneous
  Country: US (occurrence: US)
  Receive Date: 20120730
  Receipt Date: 20130109
  Transmission Date: 20140127
  Serious: Yes (Hospitalization, Other)
  Sender: FDA-Public Use
  Company Number: US-US-EMD SERONO, INC.-7149444

PATIENT
  Sex: Female
  Weight: 57 kg

DRUGS (3)
  1. REBIF [Suspect]
     Indication: MULTIPLE SCLEROSIS
     Route: 058
     Dates: start: 201201, end: 201202
  2. REBIF [Suspect]
     Route: 058
     Dates: start: 201203
  3. IBUPROFEN [Suspect]
     Indication: PREMEDICATION

REACTIONS (7)
  - Colitis ulcerative [Recovered/Resolved]
  - Gastrointestinal infection [Unknown]
  - Clostridium difficile infection [Unknown]
  - Catheter site infection [Unknown]
  - Injection site bruising [Not Recovered/Not Resolved]
  - Injection site nodule [Not Recovered/Not Resolved]
  - Pyrexia [Unknown]
